FAERS Safety Report 10309059 (Version 2)
Quarter: 2014Q4

REPORT INFORMATION
  Report Type: Spontaneous
  Country: US (occurrence: US)
  Receive Date: 20140716
  Receipt Date: 20141013
  Transmission Date: 20150528
  Serious: Yes (Hospitalization, Other)
  Sender: FDA-Public Use
  Company Number: US-ABBVIE-14P-163-1258339-00

PATIENT
  Age: 31 Year
  Sex: Female
  Weight: 56.75 kg

DRUGS (25)
  1. ETANERCEPT [Suspect]
     Active Substance: ETANERCEPT
     Indication: PRODUCT USED FOR UNKNOWN INDICATION
     Route: 065
     Dates: start: 2009, end: 2010
  2. XANAX [Concomitant]
     Active Substance: ALPRAZOLAM
     Indication: PRODUCT USED FOR UNKNOWN INDICATION
     Route: 048
  3. CLARITIN [Concomitant]
     Active Substance: LORATADINE
     Indication: PRODUCT USED FOR UNKNOWN INDICATION
     Route: 048
  4. NEURONTIN [Concomitant]
     Active Substance: GABAPENTIN
     Indication: PRODUCT USED FOR UNKNOWN INDICATION
     Dosage: AT BEDTIME
     Route: 048
  5. BISOPROLOL [Concomitant]
     Active Substance: BISOPROLOL
     Indication: HEART RATE
     Dosage: HOLD FOR HEART RATE {60 OR BP {100/60
     Route: 048
  6. SULFASALAZINE. [Concomitant]
     Active Substance: SULFASALAZINE
     Indication: PRODUCT USED FOR UNKNOWN INDICATION
     Dates: start: 2007
  7. ALBUTEROL W/IPRATROPIUM [Concomitant]
     Active Substance: ALBUTEROL\IPRATROPIUM
     Indication: DYSPNOEA
     Dosage: 2.5 MG-0.5 MG, OUR TIMES A DAY, AS NEEDED
     Route: 055
  8. COMPAZINE [Concomitant]
     Active Substance: PROCHLORPERAZINE MALEATE
     Indication: NAUSEA
     Dosage: EVERY SIX HOURS
     Route: 048
  9. BISOPROLOL [Concomitant]
     Active Substance: BISOPROLOL
     Indication: BLOOD PRESSURE
  10. INFLIXIMAB [Concomitant]
     Active Substance: INFLIXIMAB
     Indication: PRODUCT USED FOR UNKNOWN INDICATION
     Dosage: ONLY ONE DOSE
     Dates: start: 2010
  11. SYNTHROID [Concomitant]
     Active Substance: LEVOTHYROXINE SODIUM
     Indication: PRODUCT USED FOR UNKNOWN INDICATION
     Route: 048
  12. FLUTICASONE W/SALMETEROL [Concomitant]
     Active Substance: FLUTICASONE PROPIONATE\SALMETEROL XINAFOATE
     Indication: PRODUCT USED FOR UNKNOWN INDICATION
     Dosage: DISKUS 250MCG-50MCG
     Route: 055
  13. OXYCODONE [Concomitant]
     Active Substance: OXYCODONE
     Indication: PAIN
     Dosage: TAKES 1 TO 1.5 TABLETS EVERY FOUR HOURS
     Route: 048
  14. LIDOCAINE. [Concomitant]
     Active Substance: LIDOCAINE
     Indication: ORAL PAIN
     Dosage: SWISH AND SWALLOW, EVERY SIX HOURS
     Route: 061
  15. EMLA [Concomitant]
     Active Substance: LIDOCAINE\PRILOCAINE
     Indication: PRODUCT USED FOR UNKNOWN INDICATION
     Dosage: 2.5%-2.5%, ONE APPLICATION
     Route: 061
  16. BACTRIM DS [Concomitant]
     Active Substance: SULFAMETHOXAZOLE\TRIMETHOPRIM
     Indication: PRODUCT USED FOR UNKNOWN INDICATION
     Dosage: 800MG-160MG
     Route: 048
  17. MS CONTIN [Concomitant]
     Active Substance: MORPHINE SULFATE
     Indication: PRODUCT USED FOR UNKNOWN INDICATION
     Dosage: INSTRUCTIONS: 1 TAB(S) PO Q8HR
     Route: 048
  18. NORETHINDRONE. [Concomitant]
     Active Substance: NORETHINDRONE
     Indication: PRODUCT USED FOR UNKNOWN INDICATION
     Route: 048
  19. PANTOPRAZOLE [Concomitant]
     Active Substance: PANTOPRAZOLE SODIUM
     Indication: PRODUCT USED FOR UNKNOWN INDICATION
     Route: 048
  20. HUMIRA [Suspect]
     Active Substance: ADALIMUMAB
     Indication: RHEUMATOID ARTHRITIS
     Route: 058
     Dates: start: 2008, end: 2009
  21. ENBREL [Suspect]
     Active Substance: ETANERCEPT
     Indication: RHEUMATOID ARTHRITIS
     Route: 065
     Dates: start: 2009, end: 2010
  22. BIRTH CONTROL [Concomitant]
     Active Substance: UNSPECIFIED INGREDIENT
     Indication: CONTRACEPTION
  23. LACTULOSE. [Concomitant]
     Active Substance: LACTULOSE
     Indication: CONSTIPATION
     Dosage: 10G/15ML, 20GM, 30ML, THRICE IN A DAY, GIVE ONLY AS RESCUE MEDICATION
     Route: 048
  24. ORENCIA [Suspect]
     Active Substance: ABATACEPT
     Indication: RHEUMATOID ARTHRITIS
     Route: 065
     Dates: start: 2011, end: 201405
  25. DOCUSATE W/SENNA [Concomitant]
     Indication: FAECES HARD
     Dosage: 50MG-8.6MG, TAKKE 4 AT BEDTIME AND ADJUST AS NEEDED
     Route: 048

REACTIONS (31)
  - Pneumonia [Unknown]
  - Paraesthesia [Recovered/Resolved]
  - Dyspnoea [Unknown]
  - Pulmonary mass [Recovering/Resolving]
  - Platelet count increased [Unknown]
  - Normochromic normocytic anaemia [Unknown]
  - Liver disorder [Unknown]
  - Paraneoplastic syndrome [Recovering/Resolving]
  - Lymphadenopathy mediastinal [Unknown]
  - Hypoaesthesia [Recovering/Resolving]
  - Hypothyroidism [Unknown]
  - Neutrophilia [Recovering/Resolving]
  - Pyrexia [Recovered/Resolved]
  - White blood cell count increased [Unknown]
  - Drug ineffective [Not Recovered/Not Resolved]
  - Dyspnoea exertional [Unknown]
  - Pain [Unknown]
  - Pain [Not Recovered/Not Resolved]
  - Back pain [Not Recovered/Not Resolved]
  - Hyperhidrosis [Not Recovered/Not Resolved]
  - Musculoskeletal pain [Not Recovered/Not Resolved]
  - Pyrexia [Not Recovered/Not Resolved]
  - Impaired healing [Unknown]
  - Haemoglobin decreased [Unknown]
  - Red cell distribution width increased [Unknown]
  - Blood albumin decreased [Unknown]
  - Sarcoma [Not Recovered/Not Resolved]
  - Mass [Not Recovered/Not Resolved]
  - Hypertension [Not Recovered/Not Resolved]
  - Mediastinal mass [Recovering/Resolving]
  - Blood urea decreased [Unknown]

NARRATIVE: CASE EVENT DATE: 2009
